FAERS Safety Report 8861037 (Version 1)
Quarter: 2012Q4

REPORT INFORMATION
  Report Type: 
  Country: FR (occurrence: FR)
  Receive Date: 20121025
  Receipt Date: 20121025
  Transmission Date: 20130627
  Serious: Yes (Hospitalization)
  Sender: FDA-Public Use
  Company Number: FR-ELI_LILLY_AND_COMPANY-FR201210004321

PATIENT
  Sex: Female

DRUGS (2)
  1. GEMZAR [Suspect]
     Indication: LEIOMYOSARCOMA METASTATIC
     Dosage: 1200 mg, unknown
     Route: 042
     Dates: start: 20110815, end: 201109
  2. TAXOTERE [Concomitant]
     Indication: LEIOMYOSARCOMA METASTATIC
     Dosage: 68 mg, unknown
     Route: 042
     Dates: start: 20110815, end: 201109

REACTIONS (3)
  - General physical health deterioration [Unknown]
  - Asthenia [Unknown]
  - Malnutrition [Unknown]
